FAERS Safety Report 8828345 (Version 2)
Quarter: 2012Q4

REPORT INFORMATION
  Report Type: 
  Country: US (occurrence: US)
  Receive Date: 20121005
  Receipt Date: 20121012
  Transmission Date: 20130627
  Serious: Yes (Other)
  Sender: FDA-Public Use
  Company Number: US-PFIZER INC-2012244922

PATIENT
  Age: 68 Year
  Sex: Female

DRUGS (1)
  1. PACLITAXEL [Suspect]
     Indication: BREAST CANCER
     Dosage: 12 weekly cycles of paclitaxel (80 mg/m2)

REACTIONS (1)
  - Pyogenic granuloma [Recovered/Resolved]
